FAERS Safety Report 25360488 (Version 2)
Quarter: 2025Q2

REPORT INFORMATION
  Report Type: Spontaneous
  Country: US (occurrence: US)
  Receive Date: 20250527
  Receipt Date: 20250530
  Transmission Date: 20250717
  Serious: No
  Sender: AMGEN
  Company Number: US-AMGEN-USASP2025098439

PATIENT
  Age: 63 Year
  Sex: Female

DRUGS (2)
  1. PROLIA [Suspect]
     Active Substance: DENOSUMAB
     Indication: Product used for unknown indication
     Route: 065
  2. RECLAST [Concomitant]
     Active Substance: ZOLEDRONIC ACID
     Route: 065

REACTIONS (1)
  - Bone density decreased [Unknown]
